FAERS Safety Report 9402381 (Version 1)
Quarter: 2013Q3

REPORT INFORMATION
  Report Type: Spontaneous
  Country: US (occurrence: None)
  Receive Date: 20130712
  Receipt Date: 20130712
  Transmission Date: 20140515
  Serious: Yes (Life-Threatening, Hospitalization, Other)
  Sender: FDA-Public Use
  Company Number: None

PATIENT
  Age: 26 Year
  Sex: Male

DRUGS (4)
  1. PROLIXIN [Suspect]
     Dosage: INJECTIONS, AND PILLS, TWICE DAILY, THREE, IM
     Route: 030
     Dates: start: 19960306, end: 19980306
  2. ZYPREXA [Suspect]
     Dates: start: 19970306, end: 19980306
  3. WELLBUTRIN [Suspect]
  4. NAVANE [Suspect]

REACTIONS (1)
  - No adverse event [None]
